FAERS Safety Report 5535095-5 (Version None)
Quarter: 2007Q4

REPORT INFORMATION
  Report Type: 
  Country: None (occurrence: None)
  Receive Date: 20071203
  Receipt Date: 20071129
  Transmission Date: 20080405
  Serious: Yes (Hospitalization)
  Sender: FDA-Public Use
  Company Number: GRT 2007-14482

PATIENT
  Age: 63 Year
  Sex: Female
  Weight: 79 kg

DRUGS (2)
  1. LIDOCAINE [Suspect]
     Indication: NEURALGIA
     Dates: start: 20070822, end: 20071021
  2. PREGABALIN [Suspect]
     Indication: NEURALGIA
     Dosage: 600MG/DAY
     Dates: start: 20070822, end: 20071021

REACTIONS (1)
  - ARTERIOSCLEROSIS [None]
